FAERS Safety Report 15532727 (Version 1)
Quarter: 2018Q4

REPORT INFORMATION
  Report Type: Report from Study
  Country: US (occurrence: US)
  Receive Date: 20181019
  Receipt Date: 20181019
  Transmission Date: 20190205
  Serious: No
  Sender: FDA-Public Use
  Company Number: US-ROCHE-2198201

PATIENT
  Age: 35 Year
  Sex: Female
  Weight: 127.12 kg

DRUGS (1)
  1. OCREVUS [Suspect]
     Active Substance: OCRELIZUMAB
     Indication: RELAPSING MULTIPLE SCLEROSIS
     Dosage: SECOND HALF OF THE FIRST DOSE ON 27-APR-2018
     Route: 065
     Dates: start: 20180413

REACTIONS (3)
  - Acne [Unknown]
  - Oral herpes [Unknown]
  - Menstruation irregular [Unknown]

NARRATIVE: CASE EVENT DATE: 20181007
